FAERS Safety Report 5209994-8 (Version None)
Quarter: 2006Q4

REPORT INFORMATION
  Report Type: 
  Country: None (occurrence: None)
  Receive Date: 20061130
  Receipt Date: 20050831
  Transmission Date: 20070319
  Serious: No
  Sender: FDA-Public Use
  Company Number: 2005UW04283

PATIENT
  Age: 24 Year
  Sex: Male
  Weight: 42.184 kg

DRUGS (4)
  1. ENTOCORT EC [Suspect]
     Indication: CROHN'S DISEASE
     Dosage: 9 MG QD PO
     Route: 047
     Dates: start: 20050308
  2. ENTOCORT EC [Suspect]
     Indication: CROHN'S DISEASE
     Dates: start: 20050601
  3. PENTASA [Concomitant]
  4. LACTAID [Concomitant]

REACTIONS (7)
  - ABDOMINAL PAIN UPPER [None]
  - ABSCESS INTESTINAL [None]
  - CROHN'S DISEASE [None]
  - DECREASED APPETITE [None]
  - FATIGUE [None]
  - GASTROINTESTINAL FISTULA [None]
  - WOUND DRAINAGE [None]
